FAERS Safety Report 9474979 (Version 2)
Quarter: 2013Q3

REPORT INFORMATION
  Report Type: Spontaneous
  Country: US (occurrence: US)
  Receive Date: 20130824
  Receipt Date: 20130824
  Transmission Date: 20140515
  Serious: Yes (Hospitalization, Other)
  Sender: FDA-Public Use
  Company Number: US-ROCHE-1101833

PATIENT
  Sex: Female

DRUGS (3)
  1. CELLCEPT [Suspect]
     Indication: SKIN BACTERIAL INFECTION
     Route: 048
     Dates: start: 2011
  2. COUMADIN [Concomitant]
     Indication: ATRIAL FIBRILLATION
     Route: 048
  3. DILTIAZEM [Concomitant]
     Indication: ATRIAL FIBRILLATION
     Route: 048

REACTIONS (5)
  - Fall [Unknown]
  - Spinal fracture [Recovered/Resolved with Sequelae]
  - Skin cancer [Unknown]
  - Full blood count decreased [Unknown]
  - Cardiac disorder [Unknown]
